FAERS Safety Report 9383215 (Version 2)
Quarter: 2013Q3

REPORT INFORMATION
  Report Type: Spontaneous
  Country: US (occurrence: US)
  Receive Date: 20130704
  Receipt Date: 20130718
  Transmission Date: 20140515
  Serious: Yes (Hospitalization)
  Sender: FDA-Public Use
  Company Number: US-BIOGENIDEC-2013BI058273

PATIENT
  Age: 33 Year
  Sex: Female

DRUGS (10)
  1. AVONEX [Suspect]
     Indication: MULTIPLE SCLEROSIS
     Route: 030
     Dates: start: 20130408
  2. AVONEX [Suspect]
     Indication: MULTIPLE SCLEROSIS
     Route: 030
     Dates: start: 20130625
  3. ZOFRAN [Concomitant]
     Indication: NAUSEA
     Route: 048
     Dates: start: 20130622
  4. AMBIEN [Concomitant]
     Indication: INSOMNIA
     Route: 048
     Dates: start: 20130616
  5. BENADRYL [Concomitant]
     Indication: INSOMNIA
     Route: 048
     Dates: end: 20130616
  6. CYMBALTA [Concomitant]
     Dates: start: 20130531
  7. LEVAQUIN [Concomitant]
     Dates: start: 20130531
  8. MINOCYCLINE HCL [Concomitant]
     Dates: start: 20130531
  9. TETRACYCLINE [Concomitant]
     Dates: start: 20130531
  10. PENICILLIN G POTASSIUM [Concomitant]
     Dates: start: 20130531

REACTIONS (10)
  - Medical device complication [Not Recovered/Not Resolved]
  - Superior vena cava syndrome [Not Recovered/Not Resolved]
  - Loss of consciousness [Recovered/Resolved]
  - Blister [Not Recovered/Not Resolved]
  - Hyperaesthesia [Not Recovered/Not Resolved]
  - Pruritus [Not Recovered/Not Resolved]
  - Urticaria [Recovered/Resolved]
  - Dizziness [Not Recovered/Not Resolved]
  - Rash erythematous [Not Recovered/Not Resolved]
  - Rash papular [Not Recovered/Not Resolved]
